FAERS Safety Report 6165174-3 (Version None)
Quarter: 2009Q2

REPORT INFORMATION
  Report Type: 
  Country: None (occurrence: None)
  Receive Date: 20090421
  Receipt Date: 20090421
  Transmission Date: 20091009
  Serious: Yes (Other)
  Sender: FDA-Public Use
  Company Number: None

PATIENT
  Age: 66 Year
  Sex: Male
  Weight: 102.0593 kg

DRUGS (1)
  1. SALAGEN [Suspect]
     Indication: RADIOTHERAPY
     Dosage: 5 MG 3 TIMES DAILY PO
     Route: 048
     Dates: start: 20041101, end: 20090409

REACTIONS (1)
  - TREMOR [None]
